FAERS Safety Report 24355981 (Version 2)
Quarter: 2024Q4

REPORT INFORMATION
  Report Type: Report from Study
  Country: GB (occurrence: GB)
  Receive Date: 20240924
  Receipt Date: 20241001
  Transmission Date: 20250115
  Serious: Yes (Death)
  Sender: ABBVIE
  Company Number: GB-ABBVIE-5935596

PATIENT
  Sex: Male

DRUGS (2)
  1. CARBIDOPA\LEVODOPA [Suspect]
     Active Substance: CARBIDOPA\LEVODOPA
     Indication: Parkinson^s disease
     Dosage: 100 ML CASSETTE; 20MGS/5MGS
     Route: 050
  2. CARBIDOPA\LEVODOPA [Suspect]
     Active Substance: CARBIDOPA\LEVODOPA

REACTIONS (1)
  - Illness [Fatal]
